FAERS Safety Report 8834286 (Version 2)
Quarter: 2013Q1

REPORT INFORMATION
  Report Type: Spontaneous
  Country: US (occurrence: None)
  Receive Date: 20121009
  Receipt Date: 20130222
  Transmission Date: 20140127
  Serious: Yes (Death, Hospitalization)
  Sender: FDA-Public Use
  Company Number: 2012SA071600

PATIENT
  Age: 51 Year
  Sex: Female

DRUGS (4)
  1. CLONAZEPAM [Suspect]
     Indication: PRODUCT USED FOR UNKNOWN INDICATION
     Dosage: ; ONCE ; UNKNOWN
     Dates: start: 201008, end: 201008
  2. MELATONIN [Suspect]
     Indication: PRODUCT USED FOR UNKNOWN INDICATION
     Dosage: ; ONCE ; UNKNOWN
     Dates: start: 201008, end: 201008
  3. ATIVAN [Suspect]
     Indication: PRODUCT USED FOR UNKNOWN INDICATION
     Dosage: ; ONCE ; UNKNOWN
     Dates: start: 201008, end: 201008
  4. CARISOPRODOL [Suspect]
     Indication: PRODUCT USED FOR UNKNOWN INDICATION
     Dosage: ; ONCE ; UNKNOWN
     Dates: start: 201008, end: 201008

REACTIONS (16)
  - Urinary bladder rupture [None]
  - Pneumonia aspiration [None]
  - Intentional overdose [None]
  - Unresponsive to stimuli [None]
  - Toxicity to various agents [None]
  - Tachypnoea [None]
  - Hyperhidrosis [None]
  - Pain [None]
  - Soft tissue haemorrhage [None]
  - Hepatic fibrosis [None]
  - Urinary bladder haemorrhage [None]
  - Cardio-respiratory arrest [None]
  - General physical health deterioration [None]
  - Hepatomegaly [None]
  - Abdominal adhesions [None]
  - Bronchopneumonia [None]
